FAERS Safety Report 19642508 (Version 1)
Quarter: 2021Q3

REPORT INFORMATION
  Report Type: Spontaneous
  Country: CN (occurrence: CN)
  Receive Date: 20210730
  Receipt Date: 20210730
  Transmission Date: 20211014
  Serious: Yes (Other)
  Sender: FDA-Public Use
  Company Number: CN-PFIZER INC-202100910294

PATIENT
  Age: 39 Year
  Sex: Female
  Weight: 62 kg

DRUGS (4)
  1. CYCLOPHOSPHAMIDE. [Suspect]
     Active Substance: CYCLOPHOSPHAMIDE
     Indication: BREAST CANCER
     Dosage: 1.000 G, 1X/DAY
     Route: 041
     Dates: start: 20210608, end: 20210608
  2. PHARMORUBICIN [Suspect]
     Active Substance: EPIRUBICIN
     Indication: BREAST CANCER
     Dosage: 166 MG, 1X/DAY
     Route: 041
     Dates: start: 20210608, end: 20210608
  3. SODIUM CHLORIDE. [Concomitant]
     Active Substance: SODIUM CHLORIDE
     Indication: VEHICLE SOLUTION USE
     Dosage: 100.0000 ML, 1X/DAY
     Route: 041
     Dates: start: 20210608, end: 20210608
  4. SODIUM CHLORIDE. [Concomitant]
     Active Substance: SODIUM CHLORIDE
     Dosage: 100.0000 ML, 1X/DAY
     Route: 041
     Dates: start: 20210608, end: 20210608

REACTIONS (3)
  - Neutrophil count decreased [Recovering/Resolving]
  - White blood cell count decreased [Recovering/Resolving]
  - Blood count abnormal [Recovering/Resolving]

NARRATIVE: CASE EVENT DATE: 20210621
